FAERS Safety Report 23478528 (Version 1)
Quarter: 2024Q1

REPORT INFORMATION
  Report Type: Spontaneous
  Country: US (occurrence: US)
  Receive Date: 20240204
  Receipt Date: 20240204
  Transmission Date: 20240410
  Serious: No
  Sender: FDA-Public Use
  Company Number: US-EXELIXIS-CABO-23068556

PATIENT

DRUGS (1)
  1. CABOMETYX [Suspect]
     Active Substance: CABOZANTINIB S-MALATE
     Indication: Renal cancer
     Dosage: UNK

REACTIONS (6)
  - Gastrointestinal motility disorder [Unknown]
  - Thyroid disorder [Unknown]
  - Taste disorder [Unknown]
  - Blood pressure decreased [Unknown]
  - Nausea [Unknown]
  - Weight decreased [Unknown]
